FAERS Safety Report 5731078-0 (Version None)
Quarter: 2008Q2

REPORT INFORMATION
  Report Type: 
  Country: None (occurrence: None)
  Receive Date: 20080505
  Receipt Date: 20080421
  Transmission Date: 20081010
  Serious: No
  Sender: FDA-Public Use
  Company Number: DSU-2008-00581

PATIENT
  Age: 72 Year
  Sex: Male
  Weight: 90.7194 kg

DRUGS (3)
  1. WELCHOL         (COLESEVELAM HYDROCHLORIDE)  (625 MILLIGRAM, TABLET) [Suspect]
     Indication: HYPERLIPIDAEMIA
     Dosage: 2500 MG (1250 MG, BID), PER ORAL
     Route: 048
  2. PRINIVIL [Concomitant]
  3. METAMUCIL (PALNTAGO OVATA) (PLANTAGO OVATA) [Concomitant]

REACTIONS (3)
  - RETCHING [None]
  - UNEVALUABLE EVENT [None]
  - WRONG TECHNIQUE IN DRUG USAGE PROCESS [None]
